FAERS Safety Report 23969398 (Version 4)
Quarter: 2024Q3

REPORT INFORMATION
  Report Type: Report from Study
  Country: PT (occurrence: PT)
  Receive Date: 20240612
  Receipt Date: 20240711
  Transmission Date: 20241017
  Serious: Yes (Other)
  Sender: ABBVIE
  Company Number: PT-ABBVIE-5790071

PATIENT
  Age: 88 Year
  Sex: Female

DRUGS (21)
  1. CARBIDOPA\LEVODOPA [Suspect]
     Active Substance: CARBIDOPA\LEVODOPA
     Indication: Parkinson^s disease
     Dosage: 20 MG + 5 MG;?4ML;MAINT:2.6ML/H;EXTRA:1ML
     Route: 050
     Dates: start: 20221109
  2. CARBIDOPA\LEVODOPA [Suspect]
     Active Substance: CARBIDOPA\LEVODOPA
     Dosage: 20 MG + 5 MG (PEG);?7.5ML;MAINT:3.6ML/H;EXTRA:2ML?FIRST ADMIN DATE: 2024
     Route: 050
     Dates: end: 20240603
  3. CARBIDOPA\LEVODOPA [Suspect]
     Active Substance: CARBIDOPA\LEVODOPA
     Dosage: 20 MG + 5 MG (PEG)
     Route: 050
     Dates: start: 20240606, end: 20240611
  4. CARBIDOPA\LEVODOPA [Suspect]
     Active Substance: CARBIDOPA\LEVODOPA
     Dosage: 20 MG + 5 MG
     Route: 050
     Dates: end: 20230208
  5. CARBIDOPA\LEVODOPA [Suspect]
     Active Substance: CARBIDOPA\LEVODOPA
     Dosage: 20 MG + 5 MG (PEG), MORN:7.5ML;MAINT:3.8ML/H;EXTRA:2ML?LAST ADMIN JUN 2024
     Route: 050
     Dates: start: 20240606
  6. CARBIDOPA\LEVODOPA [Suspect]
     Active Substance: CARBIDOPA\LEVODOPA
     Dosage: 20 MG + 5 MG (PEG)?FREQUENCY TEXT: MORN:8.5ML;MAINT:4.3ML/H;EXTRA:2ML
     Route: 050
     Dates: start: 20240619
  7. CARBIDOPA\LEVODOPA [Suspect]
     Active Substance: CARBIDOPA\LEVODOPA
     Dosage: 20 MG + 5 MG (PEG), MORN:7.5ML;MAINT:3.8ML/H;EXTRA:2ML
     Route: 050
     Dates: end: 20230208
  8. CARBIDOPA\LEVODOPA [Suspect]
     Active Substance: CARBIDOPA\LEVODOPA
     Dosage: 20 MG + 5 MG (PEG);?MORN:7.5ML;MAINT:3.5ML/H;EXTRA:2ML
     Route: 050
     Dates: start: 20240603, end: 20240606
  9. CARBIDOPA\LEVODOPA [Suspect]
     Active Substance: CARBIDOPA\LEVODOPA
     Dosage: 20 MG + 5 MG (PEG), MORN:7.5ML;MAINT:3.8ML/H;EXTRA:2ML, LAST ADMIN DATE: 2024
     Route: 050
     Dates: start: 20230208, end: 2024
  10. CARBIDOPA\LEVODOPA [Suspect]
     Active Substance: CARBIDOPA\LEVODOPA
     Dosage: 20 MG + 5 MG (PEG)
     Route: 050
     Dates: start: 20240611, end: 20240619
  11. CARBIDOPA\LEVODOPA [Suspect]
     Active Substance: CARBIDOPA\LEVODOPA
     Dosage: 20 MG + 5 MG (PEG)?FREQUENCY TEXT: MORN:7.5ML;MAINT:4.1ML/H;EXTRA:2ML?STOPPED IN JUN 2024
     Route: 050
     Dates: start: 20240611
  12. CLONAZEPAM [Concomitant]
     Active Substance: CLONAZEPAM
     Indication: Product used for unknown indication
     Dosage: 1 TABLET,?FORM STRENGTH: 0.5 MILLIGRAM,?FREQUENCY TEXT: AT BEDTIME
     Dates: start: 202304
  13. LACIDIPINE [Concomitant]
     Active Substance: LACIDIPINE
     Indication: Product used for unknown indication
     Dosage: 1 TABLET,?FORM STRENGTH: 4 MILLIGRAM,?FREQUENCY TEXT: AT DINNER,?START DATE TEXT: BEFORE DUODOPA
     Route: 048
  14. CLOPIDOGREL [Concomitant]
     Active Substance: CLOPIDOGREL BISULFATE
     Indication: Product used for unknown indication
     Dosage: 1 TABLET,?FORM STRENGTH: 75 MILLIGRAM,?FREQUENCY TEXT: AT LUNCH,?START DATE TEXT: BEFORE DUODOPA
     Route: 048
  15. ASCORBIC ACID [Concomitant]
     Active Substance: ASCORBIC ACID
     Indication: pH urine increased
     Route: 065
     Dates: start: 20240606
  16. GABAPENTIN [Concomitant]
     Active Substance: GABAPENTIN
     Indication: Product used for unknown indication
     Dosage: 1 TABLET,?FORM STRENGTH: 100 MILLIGRAM,?FREQUENCY TEXT: AT BEDTIME,?START DATE TEXT: BEFORE DUODOPA
     Route: 048
  17. DULOXETINE [Concomitant]
     Active Substance: DULOXETINE
     Indication: Product used for unknown indication
     Dosage: 1 TABLET;?FORM STRENGTH: 30 MILLIGRAM,?FREQUENCY TEXT: AT BREAKFAST,?START DATE TEXT: BEFORE DUODOPA
     Route: 048
  18. OMEPRAZOLE [Concomitant]
     Active Substance: OMEPRAZOLE
     Indication: Product used for unknown indication
     Dosage: 1 TABLET;?FORM STRENGTH: 20 MILLIGRAM,?FREQUENCY TEXT: AT FASTING,?START DATE TEXT: BEFORE DUODOPA
     Route: 048
  19. DONEPEZIL [Concomitant]
     Active Substance: DONEPEZIL\DONEPEZIL HYDROCHLORIDE
     Indication: Product used for unknown indication
     Dosage: 1 TABLET;?FORM STRENGTH: 5 MILLIGRAM,?FREQUENCY TEXT: AT BREAKFAST
     Route: 048
     Dates: start: 202304
  20. DONEPEZIL [Concomitant]
     Active Substance: DONEPEZIL\DONEPEZIL HYDROCHLORIDE
     Indication: Product used for unknown indication
     Dosage: 1 TABLET;?FORM STRENGTH: 5 MILLIGRAM,?FREQUENCY TEXT: AT BEDTIME,?START DATE TEXT: BEFORE DUODOPA
     Route: 048
     Dates: end: 202304
  21. LOSARTAN [Concomitant]
     Active Substance: LOSARTAN
     Indication: Product used for unknown indication
     Dosage: 1 TABLET,?FORM STRENGTH: 50 MILLIGRAM,?FREQUENCY TEXT: AT BREAKFAST,?START DATE TEXT: BEFORE DUODOPA
     Route: 048

REACTIONS (8)
  - Urinary tract infection [Not Recovered/Not Resolved]
  - Dysuria [Recovered/Resolved]
  - Dyskinesia [Recovered/Resolved]
  - Bradykinesia [Recovering/Resolving]
  - Chromaturia [Recovering/Resolving]
  - pH urine increased [Not Recovered/Not Resolved]
  - Musculoskeletal stiffness [Recovering/Resolving]
  - Dysphagia [Recovering/Resolving]

NARRATIVE: CASE EVENT DATE: 20240101
